FAERS Safety Report 5453827-1 (Version None)
Quarter: 2007Q3

REPORT INFORMATION
  Report Type: 
  Country: None (occurrence: None)
  Receive Date: 20070917
  Receipt Date: 20070910
  Transmission Date: 20080115
  Serious: Yes (Other)
  Sender: FDA-Public Use
  Company Number: A0680208A

PATIENT
  Age: 70 Year
  Sex: Male

DRUGS (10)
  1. ROSIGLITAZONE [Suspect]
     Dosage: 4MG PER DAY
     Route: 048
     Dates: start: 20061121, end: 20070601
  2. PIOGLITAZONE [Suspect]
     Dosage: 30MG PER DAY
     Route: 048
     Dates: start: 20070602
  3. BLINDED TRIAL MEDICATION [Suspect]
     Dosage: 5MG PER DAY
     Route: 048
     Dates: start: 20061206
  4. LEVODOPA [Concomitant]
     Dates: start: 20070319, end: 20070822
  5. ATORVASTATIN CALCIUM [Concomitant]
     Dates: start: 20070711, end: 20070822
  6. LOSARTAN POSTASSIUM [Concomitant]
     Dates: start: 19960101, end: 20070822
  7. FINASTERIDE [Concomitant]
  8. DICLOFENAC [Concomitant]
  9. ALPRAZOLAM [Concomitant]
  10. BENSERAZIDE [Concomitant]

REACTIONS (3)
  - BACK PAIN [None]
  - RENAL NEOPLASM [None]
  - TESTICULAR PAIN [None]
